FAERS Safety Report 5206561-7 (Version None)
Quarter: 2007Q1

REPORT INFORMATION
  Report Type: 
  Country: None (occurrence: None)
  Receive Date: 20070111
  Receipt Date: 20061228
  Transmission Date: 20070707
  Serious: Yes (Hospitalization)
  Sender: FDA-Public Use
  Company Number: US-ELI_LILLY_AND_COMPANY-US200612004665

PATIENT
  Age: 79 Year
  Sex: Female

DRUGS (7)
  1. FORTEO [Suspect]
     Indication: BONE DISORDER
     Dosage: UNK, UNK
     Dates: start: 20060501
  2. LEVOTHYROXINE SODIUM [Concomitant]
     Indication: THYROID DISORDER
  3. VITAMIN B COMPLEX CAP [Concomitant]
  4. ASCORBIC ACID [Concomitant]
  5. CALCIUM WITH VITAMIN D [Concomitant]
     Indication: MEDICAL DIET
  6. GLUCOSAMINE W/CHONDROITIN [Concomitant]
  7. ATACAND                                 /SWE/ [Concomitant]
     Indication: BLOOD PRESSURE
     Dosage: UNK, UNK

REACTIONS (10)
  - BLOOD CALCIUM INCREASED [None]
  - BLOOD PRESSURE DECREASED [None]
  - BLOOD PRESSURE SYSTOLIC INCREASED [None]
  - ERYTHEMA [None]
  - FEELING ABNORMAL [None]
  - GAIT DISTURBANCE [None]
  - LIMB DISCOMFORT [None]
  - PAIN IN EXTREMITY [None]
  - SCAB [None]
  - TREMOR [None]
